FAERS Safety Report 17025603 (Version 3)
Quarter: 2024Q4

REPORT INFORMATION
  Report Type: Spontaneous
  Country: JP (occurrence: JP)
  Receive Date: 20191113
  Receipt Date: 20241204
  Transmission Date: 20250115
  Serious: Yes (Other)
  Sender: PFIZER
  Company Number: JP-PFIZER INC-2019483736

PATIENT
  Age: 57 Year
  Sex: Male

DRUGS (4)
  1. DOCETAXEL [Suspect]
     Active Substance: DOCETAXEL
     Indication: Lung squamous cell carcinoma stage IV
     Dosage: UNK, CYCLIC (2 MONTHS)
  2. NIVOLUMAB [Suspect]
     Active Substance: NIVOLUMAB
     Indication: Lung squamous cell carcinoma stage IV
     Dosage: 3 MG/KG PER EVERY 2 WEEKS FOR 3 MONTHS
  3. RAMUCIRUMAB [Suspect]
     Active Substance: RAMUCIRUMAB
     Indication: Lung squamous cell carcinoma stage IV
     Dosage: UNK, CYCLIC (2 MONTHS)
  4. VILDAGLIPTIN [Suspect]
     Active Substance: VILDAGLIPTIN
     Indication: Diabetes mellitus
     Dosage: UNK

REACTIONS (1)
  - Lichen planus pemphigoides [Recovering/Resolving]
